FAERS Safety Report 9357276 (Version 2)
Quarter: 2013Q3

REPORT INFORMATION
  Report Type: Spontaneous
  Country: US (occurrence: US)
  Receive Date: 20130620
  Receipt Date: 20130826
  Transmission Date: 20140515
  Serious: No
  Sender: FDA-Public Use
  Company Number: US-ASTRAZENECA-2013SE42246

PATIENT
  Age: 71 Year
  Sex: Female

DRUGS (2)
  1. SYMBICORT PMDI [Suspect]
     Dosage: 160 MCG/4.5 MCG, 2 PUFFS BID
     Route: 055
  2. SYMBICORT PMDI [Suspect]
     Dosage: 80 MCG/4.5 MCG, 2 PUFFS BID
     Route: 055
     Dates: start: 20130608

REACTIONS (2)
  - Dyspnoea [Unknown]
  - Intentional drug misuse [Unknown]
